FAERS Safety Report 10037853 (Version 1)
Quarter: 2014Q1

REPORT INFORMATION
  Report Type: Spontaneous
  Country: US (occurrence: None)
  Receive Date: 20140306
  Receipt Date: 20140306
  Transmission Date: 20141002
  Serious: Yes (Other)
  Sender: FDA-Public Use
  Company Number: 163-21880-13062223

PATIENT
  Age: 65 Year
  Sex: Female
  Weight: 118.2 kg

DRUGS (11)
  1. REVLIMID (LENALIDOMIDE) (25 MILLIGRAM, CAPSULES) [Suspect]
     Indication: PLASMA CELL MYELOMA
     Route: 048
     Dates: start: 201209, end: 20121228
  2. LISINOPRIL (LISINOPRIL) [Concomitant]
  3. HYDROMORPHONE (HYDROMORPHONE) [Concomitant]
  4. LORAZEPAM (LORAZEPAM) [Concomitant]
  5. ASPIRIN (ACETYLSALICYLIC ACID) [Concomitant]
  6. PROCHLORPERAZINE (PROCHLORPERAZINE) [Concomitant]
  7. FENTANYL (FENTANYL) [Concomitant]
  8. ALBUTEROL NEBULIZER (SALBUTAMOL) [Concomitant]
  9. INSULIN GLARGINE (INSULIN GLARGINE) [Concomitant]
  10. INSULIN ASPART (INSULIN ASPART) [Concomitant]
  11. ACYCLOVIR (ACICLOVIR) (ACICLOVIR) [Concomitant]

REACTIONS (1)
  - Pneumonia [None]
